FAERS Safety Report 8027715-0 (Version None)
Quarter: 2012Q1

REPORT INFORMATION
  Report Type: 
  Country: None (occurrence: None)
  Receive Date: 20120104
  Receipt Date: 20111219
  Transmission Date: 20120608
  Serious: Yes (Other)
  Sender: FDA-Public Use
  Company Number: 2011-000128

PATIENT

DRUGS (1)
  1. DIDRONEL [Suspect]
     Dosage: ORAL
     Route: 048

REACTIONS (4)
  - OESOPHAGEAL CARCINOMA [None]
  - HEPATIC NEOPLASM MALIGNANT [None]
  - GASTRIC CANCER [None]
  - PANCREATIC CARCINOMA [None]
